FAERS Safety Report 5848378-6 (Version None)
Quarter: 2008Q3

REPORT INFORMATION
  Report Type: 
  Country: None (occurrence: None)
  Receive Date: 20080818
  Receipt Date: 20080808
  Transmission Date: 20090109
  Serious: Yes (Other)
  Sender: FDA-Public Use
  Company Number: US-CELGENEUS-163-21880-08070955

PATIENT
  Sex: Male

DRUGS (2)
  1. REVLIMID [Suspect]
     Indication: MYELODYSPLASTIC SYNDROME
     Route: 048
     Dates: start: 20080424
  2. REVLIMID [Suspect]
     Dosage: 10-15MG
     Route: 048
     Dates: start: 20080324, end: 20080422

REACTIONS (14)
  - ANAEMIA [None]
  - ANOREXIA [None]
  - BLOOD COUNT ABNORMAL [None]
  - CARDIAC DISORDER [None]
  - FATIGUE [None]
  - HYPOAESTHESIA [None]
  - LIVER DISORDER [None]
  - MUSCLE SPASMS [None]
  - NO THERAPEUTIC RESPONSE [None]
  - OEDEMA PERIPHERAL [None]
  - PLATELET COUNT DECREASED [None]
  - PLEURAL EFFUSION [None]
  - RESTLESS LEGS SYNDROME [None]
  - WHITE BLOOD CELL COUNT DECREASED [None]
